FAERS Safety Report 18012720 (Version 1)
Quarter: 2020Q3

REPORT INFORMATION
  Report Type: Spontaneous
  Country: US (occurrence: US)
  Receive Date: 20200712
  Receipt Date: 20200712
  Transmission Date: 20201103
  Serious: Yes (Other)
  Sender: FDA-Public Use
  Company Number: None

PATIENT
  Age: 41 Year
  Sex: Female
  Weight: 76.5 kg

DRUGS (3)
  1. COUMADIN [Concomitant]
     Active Substance: WARFARIN SODIUM
  2. BLUMEN ADVANCED HAND SANITIZER [Suspect]
     Active Substance: ALCOHOL
     Indication: COVID-19
     Dosage: ?          QUANTITY:10 DIME SIZE;?
     Route: 061
     Dates: start: 20200622, end: 20200626
  3. TYLENOL [Concomitant]
     Active Substance: ACETAMINOPHEN

REACTIONS (5)
  - Tremor [None]
  - Vomiting [None]
  - Nausea [None]
  - Visual impairment [None]
  - Palpitations [None]

NARRATIVE: CASE EVENT DATE: 20200626
